FAERS Safety Report 17727494 (Version 4)
Quarter: 2021Q1

REPORT INFORMATION
  Report Type: Spontaneous
  Country: US (occurrence: US)
  Receive Date: 20200430
  Receipt Date: 20210323
  Transmission Date: 20210419
  Serious: Yes (Other)
  Sender: FDA-Public Use
  Company Number: US-PFIZER INC-2020172797

PATIENT
  Age: 51 Year
  Sex: Female

DRUGS (3)
  1. XELJANZ [Suspect]
     Active Substance: TOFACITINIB CITRATE
     Dosage: 5 MG
     Dates: start: 2020, end: 202008
  2. XELJANZ [Suspect]
     Active Substance: TOFACITINIB CITRATE
     Dosage: 7.5 MG, DAILY [5 MG TABLETS AS 0.5 TABLETS IN THE MORNING AND 1 TABLET IN THE EVENING]
     Dates: start: 20200206
  3. XELJANZ [Suspect]
     Active Substance: TOFACITINIB CITRATE
     Dosage: 5 MG
     Dates: start: 20200206, end: 202003

REACTIONS (8)
  - Nausea [Unknown]
  - Malaise [Unknown]
  - Pain in extremity [Recovering/Resolving]
  - Respiratory tract infection [Recovering/Resolving]
  - Off label use [Unknown]
  - Arthralgia [Recovering/Resolving]
  - Wrong technique in product usage process [Unknown]
  - Candida infection [Recovered/Resolved]

NARRATIVE: CASE EVENT DATE: 2020
